FAERS Safety Report 18280983 (Version 1)
Quarter: 2020Q3

REPORT INFORMATION
  Report Type: Spontaneous
  Country: US (occurrence: US)
  Receive Date: 20200918
  Receipt Date: 20200918
  Transmission Date: 20201103
  Serious: No
  Sender: FDA-Public Use
  Company Number: US-JNJFOC-20200913945

PATIENT
  Age: 89 Year
  Sex: Female

DRUGS (7)
  1. BENADRYL [Suspect]
     Active Substance: DIPHENHYDRAMINE HYDROCHLORIDE
     Indication: COUGH
     Dosage: TWO TABLETS (CONSUMER TYPICALLY ONLY TAKES ONE)
     Route: 048
     Dates: start: 20200903
  2. CLINDAMYCIN. [Concomitant]
     Active Substance: CLINDAMYCIN
     Indication: CELLULITIS
     Dosage: TEN DAY COURSE. ?PROJECTED LAST DOSE: 06?SEP?2020
     Route: 065
     Dates: start: 202008
  3. BENADRYL [Suspect]
     Active Substance: DIPHENHYDRAMINE HYDROCHLORIDE
     Indication: DERMATITIS ALLERGIC
     Dosage: ONE DOSE AT NIGHT FOR COUGH
     Route: 048
     Dates: start: 2020
  4. BENADRYL [Suspect]
     Active Substance: DIPHENHYDRAMINE HYDROCHLORIDE
     Indication: SLEEP DISORDER THERAPY
  5. FLUTICASONE. [Concomitant]
     Active Substance: FLUTICASONE
     Indication: UPPER-AIRWAY COUGH SYNDROME
     Route: 065
  6. BENADRYL [Suspect]
     Active Substance: DIPHENHYDRAMINE HYDROCHLORIDE
     Indication: RASH PRURITIC
     Route: 048
     Dates: start: 2020
  7. ZYRTEC [Suspect]
     Active Substance: CETIRIZINE HYDROCHLORIDE
     Indication: CELLULITIS
     Dosage: DAILY IN THE MORNING
     Route: 048
     Dates: start: 202008

REACTIONS (7)
  - Pain in extremity [Unknown]
  - Feeling cold [Unknown]
  - Tremor [Recovered/Resolved]
  - Asthenia [Unknown]
  - Therapeutic response unexpected [Unknown]
  - Product use in unapproved indication [Unknown]
  - Off label use [Unknown]

NARRATIVE: CASE EVENT DATE: 2020
